FAERS Safety Report 10981420 (Version 1)
Quarter: 2015Q1

REPORT INFORMATION
  Report Type: Spontaneous
  Country: US (occurrence: None)
  Receive Date: 20150227
  Receipt Date: 20150227
  Transmission Date: 20150721
  Serious: Yes (Life-Threatening, Hospitalization, Other)
  Sender: FDA-Public Use
  Company Number: LMI-2014-00425

PATIENT
  Age: 73 Year
  Sex: Male
  Weight: 97.5 kg

DRUGS (10)
  1. ZOCOR [Concomitant]
     Active Substance: SIMVASTATIN
  2. METOPROLOL SUCCINATE. [Concomitant]
     Active Substance: METOPROLOL SUCCINATE
  3. ATORVASTATIN [Concomitant]
     Active Substance: ATORVASTATIN
  4. TAMSULOSIN HYDROCHLORIDE. [Concomitant]
     Active Substance: TAMSULOSIN HYDROCHLORIDE
  5. NITROSTAT (GLYCERYL TRINITRATE) [Concomitant]
  6. NASONEX [Concomitant]
     Active Substance: MOMETASONE FUROATE
  7. DEFINITY [Suspect]
     Active Substance: PERFLUTREN
     Indication: STRESS ECHOCARDIOGRAM
     Dosage: (1 VIAL DEFINITY DILUTED IN 8ML NORMAL SALINE) (2ML, 1 IN 1 D)
     Route: 040
     Dates: start: 20140916, end: 20140916
  8. DILTIAZEM ER (DILTIAZEM HYDROCHLORIDE) [Concomitant]
  9. HYDROCHLOROTHIAZIDE. [Concomitant]
     Active Substance: HYDROCHLOROTHIAZIDE
  10. CLOPIDOGREL [Concomitant]
     Active Substance: CLOPIDOGREL BISULFATE

REACTIONS (8)
  - Ventricular fibrillation [None]
  - Blood pressure decreased [None]
  - Chest pain [None]
  - Ventricular extrasystoles [None]
  - Atrial fibrillation [None]
  - Back pain [None]
  - Electrocardiogram abnormal [None]
  - Oxygen saturation decreased [None]

NARRATIVE: CASE EVENT DATE: 20140916
